FAERS Safety Report 5356913-X (Version None)
Quarter: 2007Q2

REPORT INFORMATION
  Report Type: 
  Country: None (occurrence: None)
  Receive Date: 20070614
  Receipt Date: 20060609
  Transmission Date: 20071010
  Serious: No
  Sender: FDA-Public Use
  Company Number: US-ASTRAZENECA-2006UW09383

PATIENT
  Age: 97 Year
  Sex: Female

DRUGS (2)
  1. ATACAND HCT [Suspect]
     Indication: OEDEMA PERIPHERAL
     Dosage: 32/12.5 MG BID
     Route: 048
  2. ATACAND HCT [Suspect]
     Dosage: 32/12.5 MG QAM
     Route: 048
     Dates: start: 20060611

REACTIONS (2)
  - FATIGUE [None]
  - NOCTURIA [None]
